FAERS Safety Report 6278046-0 (Version None)
Quarter: 2009Q3

REPORT INFORMATION
  Report Type: 
  Country: None (occurrence: None)
  Receive Date: 20090722
  Receipt Date: 20090713
  Transmission Date: 20100115
  Serious: Yes (Hospitalization)
  Sender: FDA-Public Use
  Company Number: PHHO2009HK08707

PATIENT
  Sex: Male
  Weight: 63.9 kg

DRUGS (2)
  1. RAD 666 RAD+TAB [Suspect]
     Indication: RENAL CELL CARCINOMA
     Dosage: 10 MG, QD
     Route: 048
     Dates: start: 20090619, end: 20090709
  2. BEVACIZUMAB [Suspect]
     Indication: RENAL CELL CARCINOMA
     Dosage: 650 MG/EVERY 2 WEEKS
     Route: 042
     Dates: start: 20090619, end: 20090709

REACTIONS (4)
  - BACK PAIN [None]
  - CHILLS [None]
  - DYSURIA [None]
  - PYREXIA [None]
